FAERS Safety Report 4880724-2 (Version None)
Quarter: 2006Q1

REPORT INFORMATION
  Report Type: 
  Country: None (occurrence: None)
  Receive Date: 20060113
  Receipt Date: 20050727
  Transmission Date: 20060701
  Serious: Yes (Hospitalization, Disabling)
  Sender: FDA-Public Use
  Company Number: US-MERCK-0507USA04245

PATIENT
  Age: 42 Year
  Sex: Male
  Weight: 109 kg

DRUGS (5)
  1. VIOXX [Suspect]
     Indication: BACK PAIN
     Route: 048
     Dates: start: 20040218, end: 20040226
  2. VIOXX [Suspect]
     Route: 048
     Dates: start: 20040407, end: 20041002
  3. VIOXX [Suspect]
     Route: 048
     Dates: start: 20040227, end: 20040401
  4. VICODIN [Concomitant]
     Route: 065
  5. SKELAXIN [Concomitant]
     Route: 065

REACTIONS (4)
  - BACK DISORDER [None]
  - DEEP VEIN THROMBOSIS [None]
  - DYSLIPIDAEMIA [None]
  - MAJOR DEPRESSION [None]
